FAERS Safety Report 13180083 (Version 1)
Quarter: 2017Q1

REPORT INFORMATION
  Report Type: Report from Study
  Country: US (occurrence: US)
  Receive Date: 20170202
  Receipt Date: 20170202
  Transmission Date: 20170428
  Serious: Yes (Hospitalization)
  Sender: FDA-Public Use
  Company Number: US-BIOGEN-2014BI048401

PATIENT
  Age: 50 Year
  Sex: Female

DRUGS (2)
  1. AVONEX [Suspect]
     Active Substance: INTERFERON BETA-1A
     Route: 030
     Dates: start: 201312, end: 201405
  2. AVONEX [Suspect]
     Active Substance: INTERFERON BETA-1A
     Indication: MULTIPLE SCLEROSIS
     Route: 030
     Dates: start: 20140207, end: 20150901

REACTIONS (14)
  - Renal failure [Fatal]
  - Hypertension [Unknown]
  - Hypotension [Recovered/Resolved]
  - Renal disorder [Not Recovered/Not Resolved]
  - Laboratory test abnormal [Unknown]
  - Skin discolouration [Unknown]
  - Renal impairment [Unknown]
  - Disorientation [Unknown]
  - Cystitis [Unknown]
  - Blood potassium increased [Unknown]
  - Swelling face [Unknown]
  - Local swelling [Unknown]
  - Pain [Unknown]
  - Acute kidney injury [Recovered/Resolved]

NARRATIVE: CASE EVENT DATE: 201403
